FAERS Safety Report 8137363-X (Version None)
Quarter: 2012Q1

REPORT INFORMATION
  Report Type: 
  Country: None (occurrence: None)
  Receive Date: 20120215
  Receipt Date: 20120203
  Transmission Date: 20120608
  Serious: Yes (Death, Hospitalization, Other)
  Sender: FDA-Public Use
  Company Number: US-JNJFOC-20120204568

PATIENT
  Age: 39 Year
  Sex: Male

DRUGS (1)
  1. REMICADE [Suspect]
     Indication: PSORIASIS
     Route: 042

REACTIONS (4)
  - SINUSITIS [None]
  - CONVULSION [None]
  - SEPSIS [None]
  - CONFUSIONAL STATE [None]
